FAERS Safety Report 13763754 (Version 1)
Quarter: 2017Q3

REPORT INFORMATION
  Report Type: Spontaneous
  Country: US (occurrence: US)
  Receive Date: 20170718
  Receipt Date: 20170718
  Transmission Date: 20171127
  Serious: Yes (Other)
  Sender: FDA-Public Use
  Company Number: PHHY2017US101112

PATIENT
  Age: 39 Year
  Sex: Male

DRUGS (1)
  1. TELMISARTAN, HYDROCHLOROTHIAZIDE [Suspect]
     Active Substance: HYDROCHLOROTHIAZIDE\TELMISARTAN
     Indication: HYPERTENSION
     Route: 065

REACTIONS (4)
  - Lichen planus [Recovering/Resolving]
  - Burning sensation [Unknown]
  - Rash pruritic [Unknown]
  - Sunburn [Unknown]
